FAERS Safety Report 6082978-6 (Version None)
Quarter: 2009Q1

REPORT INFORMATION
  Report Type: 
  Country: None (occurrence: None)
  Receive Date: 20090218
  Receipt Date: 20090209
  Transmission Date: 20090719
  Serious: Yes (Other)
  Sender: FDA-Public Use
  Company Number: IT-ROXANE LABORATORIES, INC.-2009-RO-00134RO

PATIENT
  Age: 41 Year
  Sex: Female

DRUGS (9)
  1. CITALOPRAM HYDROBROMIDE [Suspect]
     Indication: DEPRESSION
  2. CETIRIZINE [Concomitant]
     Indication: RASH
     Route: 048
  3. CETIRIZINE [Concomitant]
     Indication: OEDEMA MUCOSAL
     Route: 048
  4. CETIRIZINE [Concomitant]
     Indication: FACE OEDEMA
  5. CETIRIZINE [Concomitant]
     Indication: OEDEMA PERIPHERAL
  6. BETAMETHASONE [Concomitant]
     Indication: RASH
     Route: 048
  7. BETAMETHASONE [Concomitant]
     Indication: OEDEMA MUCOSAL
     Route: 048
  8. BETAMETHASONE [Concomitant]
     Indication: FACE OEDEMA
  9. BETAMETHASONE [Concomitant]
     Indication: OEDEMA PERIPHERAL

REACTIONS (6)
  - DISEASE RECURRENCE [None]
  - FACE OEDEMA [None]
  - FOOD INTERACTION [None]
  - OEDEMA MUCOSAL [None]
  - OEDEMA PERIPHERAL [None]
  - RASH [None]
